FAERS Safety Report 6110751-9 (Version None)
Quarter: 2009Q1

REPORT INFORMATION
  Report Type: 
  Country: None (occurrence: None)
  Receive Date: 20090309
  Receipt Date: 20090227
  Transmission Date: 20090719
  Serious: Yes (Other)
  Sender: FDA-Public Use
  Company Number: 2009SP003368

PATIENT
  Age: 47 Year
  Sex: Female

DRUGS (3)
  1. PEG-INTRON [Suspect]
     Indication: HEPATITIS C
     Dosage: SC
     Route: 058
     Dates: start: 20060101, end: 20080201
  2. RIBAVIRIN [Suspect]
     Indication: HEPATITIS C
     Dosage: PO
     Route: 048
     Dates: start: 20060101, end: 20080201
  3. KEPPRA [Concomitant]

REACTIONS (6)
  - ALCOHOL USE [None]
  - ANXIETY [None]
  - ARTHRALGIA [None]
  - CONVULSION [None]
  - RAYNAUD'S PHENOMENON [None]
  - VIRAL LOAD INCREASED [None]
